FAERS Safety Report 9790242 (Version 3)
Quarter: 2014Q4

REPORT INFORMATION
  Report Type: Spontaneous
  Country: US (occurrence: US)
  Receive Date: 20131231
  Receipt Date: 20141001
  Transmission Date: 20150529
  Serious: Yes (Other)
  Sender: FDA-Public Use
  Company Number: US-SA-2013SA135667

PATIENT
  Age: 64 Year
  Sex: Female
  Weight: 90.71 kg

DRUGS (6)
  1. SOLOSTAR [Suspect]
     Active Substance: DEVICE
     Indication: TYPE 2 DIABETES MELLITUS
     Dates: start: 2010
  2. SOLOSTAR [Suspect]
     Active Substance: DEVICE
     Indication: TYPE 2 DIABETES MELLITUS
     Dates: start: 2010
  3. LANTUS SOLOSTAR [Suspect]
     Active Substance: INSULIN GLARGINE
     Indication: TYPE 2 DIABETES MELLITUS
     Dosage: PRODUCT START DATE- FOUR YEARS. DOSE:60 UNIT(S)
     Route: 058
     Dates: start: 2010
  4. SOLOSTAR [Suspect]
     Active Substance: DEVICE
     Indication: TYPE 2 DIABETES MELLITUS
  5. LANTUS SOLOSTAR [Suspect]
     Active Substance: INSULIN GLARGINE
     Indication: TYPE 2 DIABETES MELLITUS
     Dosage: PRODUCT START DATE- FOUR YEARS. DOSE:60 UNIT(S)
     Route: 058
     Dates: start: 2010
  6. LANTUS SOLOSTAR [Suspect]
     Active Substance: INSULIN GLARGINE
     Indication: TYPE 2 DIABETES MELLITUS
     Dosage: PRODUCT START DATE- FOUR YEARS. DOSE:42 UNIT(S)
     Route: 058

REACTIONS (4)
  - Malaise [Unknown]
  - Blood glucose increased [Unknown]
  - Spinal disorder [Unknown]
  - Adverse event [Unknown]
